FAERS Safety Report 18746925 (Version 2)
Quarter: 2021Q1

REPORT INFORMATION
  Report Type: Spontaneous
  Country: US (occurrence: US)
  Receive Date: 20210115
  Receipt Date: 20210217
  Transmission Date: 20210419
  Serious: Yes (Other)
  Sender: FDA-Public Use
  Company Number: US-SA-2021SA010385

PATIENT
  Age: 83 Year
  Sex: Female
  Weight: 75 kg

DRUGS (3)
  1. NOVOLOG [Concomitant]
     Active Substance: INSULIN ASPART
     Indication: TYPE 2 DIABETES MELLITUS
     Dosage: UNK
     Route: 065
  2. TOUJEO [Suspect]
     Active Substance: INSULIN GLARGINE
     Indication: TYPE 2 DIABETES MELLITUS
     Dosage: 40 IU, QD
     Route: 065
     Dates: start: 2019
  3. TOUJEO [Suspect]
     Active Substance: INSULIN GLARGINE
     Dosage: 46 IU, QD (PER NIGHT)
     Route: 065

REACTIONS (4)
  - Incorrect dose administered by device [Unknown]
  - Productive cough [Unknown]
  - Device issue [Unknown]
  - Diabetes mellitus inadequate control [Unknown]
